FAERS Safety Report 8091019-0 (Version None)
Quarter: 2012Q1

REPORT INFORMATION
  Report Type: 
  Country: None (occurrence: None)
  Receive Date: 20120128
  Receipt Date: 20110811
  Transmission Date: 20120608
  Serious: No
  Sender: FDA-Public Use
  Company Number: US-ABBOTT-11P-163-0845285-00

PATIENT
  Sex: Female

DRUGS (4)
  1. LATANOPROST [Concomitant]
     Indication: GLAUCOMA
     Dosage: NOT REPORTED   EYE DROP
     Route: 001
  2. HUMIRA [Suspect]
     Indication: RHEUMATOID ARTHRITIS
     Route: 058
     Dates: start: 20101101
  3. XALATAN [Concomitant]
     Indication: GLAUCOMA
     Dosage: NOT REPORTED EYE DROP
     Route: 001
  4. HUMIRA [Suspect]

REACTIONS (2)
  - PNEUMONIA [None]
  - SINUSITIS [None]
